FAERS Safety Report 8806226 (Version 1)
Quarter: 2012Q4

REPORT INFORMATION
  Report Type: Spontaneous
  Country: US (occurrence: None)
  Receive Date: 20120919
  Receipt Date: 20120919
  Transmission Date: 20130627
  Serious: No
  Sender: FDA-Public Use
  Company Number: None

PATIENT

DRUGS (2)
  1. BUPIVICAINE [Suspect]
     Dosage: 0.5% 300mL with 150mL Ketorolac
  2. KETOROLAC [Suspect]
     Dosage: 0.5% 300mL with 75mL Ketorolac

REACTIONS (1)
  - Intercepted drug dispensing error [None]
